FAERS Safety Report 19679131 (Version 1)
Quarter: 2021Q3

REPORT INFORMATION
  Report Type: Spontaneous
  Country: US (occurrence: US)
  Receive Date: 20210810
  Receipt Date: 20210810
  Transmission Date: 20211014
  Serious: No
  Sender: FDA-Public Use
  Company Number: None

PATIENT
  Age: 71 Year
  Sex: Male
  Weight: 72 kg

DRUGS (8)
  1. ALBUTEROL. [Concomitant]
     Active Substance: ALBUTEROL
  2. SPIRIVA [Concomitant]
     Active Substance: TIOTROPIUM BROMIDE MONOHYDRATE
  3. DILANTIN [Concomitant]
     Active Substance: PHENYTOIN
  4. VITAMIN C [Concomitant]
     Active Substance: ASCORBIC ACID
  5. FORADIL [Concomitant]
     Active Substance: FORMOTEROL FUMARATE
  6. COPPER [Concomitant]
     Active Substance: COPPER
  7. SAL PALMETTO [Concomitant]
  8. PROLASTIN?C [Suspect]
     Active Substance: .ALPHA.1-PROTEINASE INHIBITOR HUMAN
     Indication: EMPHYSEMA
     Dosage: ?          QUANTITY:1 INJECTION(S);OTHER FREQUENCY:ONCE A WEEK;?
     Route: 042

REACTIONS (2)
  - Near death experience [None]
  - Drug ineffective [None]
